FAERS Safety Report 7642033-8 (Version None)
Quarter: 2011Q3

REPORT INFORMATION
  Report Type: 
  Country: None (occurrence: None)
  Receive Date: 20110728
  Receipt Date: 20110722
  Transmission Date: 20111222
  Serious: Yes (Disabling, Other)
  Sender: FDA-Public Use
  Company Number: US-MERCK-0707USA01899

PATIENT
  Age: 65 Year
  Sex: Female

DRUGS (5)
  1. PREMPRO [Concomitant]
     Route: 065
  2. LIPITOR [Concomitant]
     Indication: CARDIOVASCULAR EVENT PROPHYLAXIS
     Route: 065
     Dates: start: 20030101, end: 20070101
  3. PREVACID [Concomitant]
     Indication: GASTROOESOPHAGEAL REFLUX DISEASE
     Route: 065
     Dates: start: 20030101, end: 20070101
  4. CORTICOSTEROIDS (UNSPECIFIED) [Concomitant]
     Route: 065
     Dates: start: 20030101, end: 20070101
  5. FOSAMAX [Suspect]
     Indication: OSTEOPOROSIS
     Route: 048
     Dates: start: 20031219, end: 20070626

REACTIONS (7)
  - BONE LOSS [None]
  - ABSCESS [None]
  - IMPAIRED HEALING [None]
  - OEDEMA MOUTH [None]
  - OSTEONECROSIS OF JAW [None]
  - ORAL INFECTION [None]
  - ORAL PAIN [None]
